FAERS Safety Report 10359811 (Version 1)
Quarter: 2014Q3

REPORT INFORMATION
  Report Type: Spontaneous
  Country: FR (occurrence: FR)
  Receive Date: 20140804
  Receipt Date: 20140804
  Transmission Date: 20150326
  Serious: Yes (Hospitalization)
  Sender: FDA-Public Use
  Company Number: PHHY2014FR094241

PATIENT
  Age: 66 Year
  Sex: Female

DRUGS (2)
  1. VELCADE [Concomitant]
     Active Substance: BORTEZOMIB
     Dosage: 2.5 MG, 4 IN 1 COURSE
     Dates: start: 20140519, end: 20140610
  2. ZOMETA [Suspect]
     Active Substance: ZOLEDRONIC ACID
     Dosage: 4 MG, SINGLE DOSE
     Route: 042
     Dates: start: 20140610, end: 20140610

REACTIONS (3)
  - Eye movement disorder [Recovered/Resolved]
  - Exophthalmos [Recovered/Resolved]
  - Parophthalmia [Recovered/Resolved]

NARRATIVE: CASE EVENT DATE: 20140616
